FAERS Safety Report 14841528 (Version 1)
Quarter: 2018Q2

REPORT INFORMATION
  Report Type: Spontaneous
  Country: US (occurrence: US)
  Receive Date: 20180503
  Receipt Date: 20180503
  Transmission Date: 20180711
  Serious: No
  Sender: FDA-Public Use
  Company Number: US-BAUSCH-BL-2017-020832

PATIENT
  Age: 78 Year
  Sex: Female

DRUGS (1)
  1. OFLOXACIN OTIC [Suspect]
     Active Substance: OFLOXACIN
     Indication: INFECTION PROPHYLAXIS
     Route: 047
     Dates: start: 20170523, end: 20170705

REACTIONS (3)
  - Off label use [Recovered/Resolved]
  - Eye infection [Not Recovered/Not Resolved]
  - Accidental exposure to product [Unknown]

NARRATIVE: CASE EVENT DATE: 2017
